FAERS Safety Report 18840074 (Version 2)
Quarter: 2021Q2

REPORT INFORMATION
  Report Type: Spontaneous
  Country: FR (occurrence: FR)
  Receive Date: 20210204
  Receipt Date: 20210409
  Transmission Date: 20210717
  Serious: Yes (Death, Life-Threatening)
  Sender: FDA-Public Use
  Company Number: FR-ROCHE-2763387

PATIENT
  Age: 72 Year
  Sex: Female
  Weight: 103 kg

DRUGS (2)
  1. TECENTRIQ [Suspect]
     Active Substance: ATEZOLIZUMAB
     Indication: HEPATOCELLULAR CARCINOMA
     Dosage: MOST RECENT DOSE OF ATEZOLIZUMAB WAS RECEIVED ON 10/DEC/2020.
     Route: 041
     Dates: start: 20201008
  2. ZIRABEV [Suspect]
     Active Substance: BEVACIZUMAB-BVZR
     Indication: HEPATOCELLULAR CARCINOMA
     Dosage: 1625 MG ON 08/OCT/2020 AND 29 THEN 1600 MG ON 19/NOV/2020 AND 10/DEC/2020.
     Route: 042
     Dates: start: 20201008

REACTIONS (1)
  - Myocardial necrosis [Recovering/Resolving]

NARRATIVE: CASE EVENT DATE: 20201231
